FAERS Safety Report 7783295-6 (Version None)
Quarter: 2011Q3

REPORT INFORMATION
  Report Type: 
  Country: None (occurrence: None)
  Receive Date: 20110928
  Receipt Date: 20110921
  Transmission Date: 20111222
  Serious: Yes (Other)
  Sender: FDA-Public Use
  Company Number: US-JNJFOC-20100510912

PATIENT
  Sex: Female

DRUGS (4)
  1. LEVAQUIN [Suspect]
  2. METHYLPREDNISOLONE [Suspect]
     Indication: PNEUMONIA
     Route: 042
  3. AVELOX [Suspect]
     Indication: PNEUMONIA
  4. LEVAQUIN [Suspect]
     Indication: PNEUMONIA
     Route: 042

REACTIONS (1)
  - ANGLE CLOSURE GLAUCOMA [None]
